FAERS Safety Report 8431118-4 (Version None)
Quarter: 2012Q2

REPORT INFORMATION
  Report Type: 
  Country: None (occurrence: None)
  Receive Date: 20120612
  Receipt Date: 20120605
  Transmission Date: 20120825
  Serious: Yes (Hospitalization)
  Sender: FDA-Public Use
  Company Number: US-MERCK-1202USA03895

PATIENT
  Age: 46 Year
  Sex: Female

DRUGS (5)
  1. FOSAMAX [Suspect]
     Route: 048
     Dates: start: 20000501
  2. FOSAMAX [Suspect]
     Indication: OSTEOPOROSIS
     Route: 048
     Dates: start: 19960101, end: 20110201
  3. FOSAMAX [Suspect]
     Route: 048
     Dates: start: 20010401
  4. FOSAMAX [Suspect]
     Route: 048
     Dates: start: 20080401
  5. ALENDRONATE SODIUM [Suspect]
     Route: 065
     Dates: start: 20081001

REACTIONS (11)
  - TENDONITIS [None]
  - BLOOD PRESSURE INCREASED [None]
  - ORAL DISORDER [None]
  - GINGIVAL DISORDER [None]
  - LOW TURNOVER OSTEOPATHY [None]
  - MITRAL VALVE PROLAPSE [None]
  - FEMUR FRACTURE [None]
  - THROMBOCYTOPENIA [None]
  - VITAMIN D DEFICIENCY [None]
  - GINGIVITIS [None]
  - UTERINE DISORDER [None]
